FAERS Safety Report 25563943 (Version 1)
Quarter: 2025Q3

REPORT INFORMATION
  Report Type: Spontaneous
  Country: US (occurrence: US)
  Receive Date: 20250716
  Receipt Date: 20250716
  Transmission Date: 20251021
  Serious: Yes (Other)
  Sender: RECORDATI
  Company Number: US-RECORDATI RARE DISEASE INC.-2025000140

PATIENT

DRUGS (3)
  1. PANHEMATIN [Suspect]
     Active Substance: HEMIN
     Indication: Porphyria
     Route: 042
     Dates: start: 20250103
  2. PANHEMATIN [Suspect]
     Active Substance: HEMIN
     Route: 042
     Dates: start: 20250104
  3. PANHEMATIN [Suspect]
     Active Substance: HEMIN
     Route: 042
     Dates: start: 20250106

REACTIONS (5)
  - Phlebitis [Unknown]
  - Injection site pain [Unknown]
  - Headache [Unknown]
  - Off label use [Recovered/Resolved]
  - Product preparation issue [Recovered/Resolved]

NARRATIVE: CASE EVENT DATE: 20250101
